FAERS Safety Report 5836669-4 (Version None)
Quarter: 2008Q3

REPORT INFORMATION
  Report Type: 
  Country: None (occurrence: None)
  Receive Date: 20080807
  Receipt Date: 20080801
  Transmission Date: 20090109
  Serious: Yes (Hospitalization)
  Sender: FDA-Public Use
  Company Number: GB-ROCHE-570755

PATIENT
  Sex: Female
  Weight: 105 kg

DRUGS (7)
  1. ORLISTAT [Suspect]
     Indication: OBESITY
     Route: 048
     Dates: start: 20080423
  2. CO-CODAMOL [Concomitant]
     Indication: BACK PAIN
     Dosage: DOSAGE REPORTED AS 8/500 MG 3 TIMES DAILY 30/500 MG 2 DAILY.  ALSO INDICATED FOR ARTHRITIS.
     Route: 048
  3. CANDESARTAN [Concomitant]
     Indication: HYPERTENSION
     Route: 048
     Dates: start: 20070828
  4. BENDROFLUMETHIAZIDE [Concomitant]
     Indication: HYPERTENSION
     Dosage: REPORTED AS BENDOFLUMETHIAZIDE AND BENDROFLUAZIDE
     Route: 048
     Dates: start: 20040831
  5. OMEPRAZOLE [Concomitant]
     Dosage: ALSO INDICATED FOR HIATUS HERNIA
     Route: 048
     Dates: start: 19980407
  6. ASPIRIN [Concomitant]
     Indication: ANTICOAGULANT THERAPY
     Dosage: ALSO INDICATED FOR PRIMARY PREVENTION
     Route: 048
  7. FLUOXETINE [Concomitant]
     Indication: DEPRESSION
     Route: 048
     Dates: start: 20000705

REACTIONS (1)
  - ANGLE CLOSURE GLAUCOMA [None]
